FAERS Safety Report 4746122-7 (Version None)
Quarter: 2005Q3

REPORT INFORMATION
  Report Type: 
  Country: None (occurrence: None)
  Receive Date: 20050816
  Receipt Date: 20050314
  Transmission Date: 20060218
  Serious: Yes (Hospitalization)
  Sender: FDA-Public Use
  Company Number: US-BRISTOL-MYERS SQUIBB COMPANY-12897245

PATIENT
  Age: 64 Year
  Sex: Female
  Weight: 45 kg

DRUGS (11)
  1. CETUXIMAB [Suspect]
     Indication: NON-SMALL CELL LUNG CANCER
     Dosage: 1ST INFUSION ADMINISTERED ON 20-DEC-2004 (1ST DOSE 640 MG). FREQUENCY: DAYS 1,8,15 EVERY 21 DAYS.
     Route: 042
     Dates: start: 20050227, end: 20050227
  2. CARBOPLATIN [Suspect]
     Indication: NON-SMALL CELL LUNG CANCER
     Dosage: 1ST INFUSION ADMINISTERED ON 20-DEC-2004 (1ST DOSE 492 MG). FREQUENCY: EVERY 21 DAYS.
     Route: 042
     Dates: start: 20050208, end: 20050208
  3. DOCETAXEL [Suspect]
     Indication: NON-SMALL CELL LUNG CANCER
     Dosage: 1ST INFUSION ADMINISTERED ON 20-DEC-2004 (1ST DOSE 120 MG). FREQUENCY: EVERY 21 DAYS.
     Route: 042
     Dates: start: 20050208, end: 20050208
  4. VICODIN [Concomitant]
     Indication: BACK PAIN
     Dosage: VICODIN 5/500 MG PO Q 4 HOURS PRN.
     Route: 048
     Dates: start: 20041215
  5. DURAGESIC-100 [Concomitant]
     Indication: BACK PAIN
     Dosage: DURAGESIC PATCH 50 MCG TRANSDERMAL Q 72 HOURS.
     Route: 062
     Dates: start: 20041212
  6. XANAX [Concomitant]
     Indication: ANXIETY
     Dosage: XANAX 0.5 MG PO EVERY 4 HOURS PRN.
     Route: 048
     Dates: start: 20041215
  7. DEXAMETHASONE [Concomitant]
     Indication: PREMEDICATION
     Dosage: DEXAMTHASONE 8 MG BID X 3 DAYS EVERY 21 DAYS (PRE-MEDICATION FOR TAXOTERE).
     Dates: start: 20041219
  8. MEGACE [Concomitant]
     Indication: ANOREXIA
     Dosage: MEGACE 80 MG QD (DAILY).
     Dates: start: 20050208
  9. BOOST [Concomitant]
     Indication: WEIGHT DECREASED
     Dosage: BOOST 2-3 CANS DAILY.
     Dates: start: 20050208
  10. RESTORIL [Concomitant]
     Indication: INSOMNIA
     Dosage: RESTORIL 15-30 MG NIGHTLY.
     Dates: start: 20050303
  11. PROTONIX [Concomitant]
     Indication: GASTROOESOPHAGEAL REFLUX DISEASE
     Dosage: PROTONIX 40 MG PO DAILY.
     Route: 048
     Dates: start: 20041215

REACTIONS (11)
  - ASTHENIA [None]
  - CATHETER SITE ERYTHEMA [None]
  - CATHETER SITE OEDEMA [None]
  - CATHETER SITE PAIN [None]
  - CHILLS [None]
  - COUGH [None]
  - INFECTION [None]
  - MENTAL STATUS CHANGES [None]
  - NAUSEA [None]
  - STAPHYLOCOCCAL INFECTION [None]
  - VOMITING [None]
